FAERS Safety Report 14085219 (Version 2)
Quarter: 2022Q3

REPORT INFORMATION
  Report Type: Spontaneous
  Country: US (occurrence: US)
  Receive Date: 20171013
  Receipt Date: 20220906
  Transmission Date: 20221027
  Serious: No
  Sender: FDA-Public Use
  Company Number: PHEH2017US033169

PATIENT
  Sex: Female

DRUGS (3)
  1. DOCETAXEL [Suspect]
     Active Substance: DOCETAXEL
     Indication: Breast cancer
     Dosage: UNK
     Route: 065
     Dates: start: 201511, end: 201602
  2. TAXOTERE [Suspect]
     Active Substance: DOCETAXEL
     Indication: Breast cancer
     Dosage: UNK
     Route: 065
     Dates: start: 201511, end: 201602
  3. DOCETAXEL [Suspect]
     Active Substance: DOCETAXEL
     Indication: Breast cancer
     Dosage: UNK
     Route: 065
     Dates: start: 201511, end: 201602

REACTIONS (9)
  - Deformity [Not Recovered/Not Resolved]
  - Injury [Unknown]
  - Anxiety [Unknown]
  - Emotional distress [Unknown]
  - Discomfort [Unknown]
  - Anhedonia [Unknown]
  - Alopecia [Not Recovered/Not Resolved]
  - Asthenia [Unknown]
  - Pain [Unknown]
